FAERS Safety Report 19472354 (Version 2)
Quarter: 2022Q1

REPORT INFORMATION
  Report Type: Spontaneous
  Country: US (occurrence: US)
  Receive Date: 20210629
  Receipt Date: 20220217
  Transmission Date: 20220424
  Serious: Yes (Life-Threatening, Hospitalization)
  Sender: FDA-Public Use
  Company Number: US-MYLANLABS-2021M1036647

PATIENT
  Age: 70 Year
  Sex: Male

DRUGS (1)
  1. EPINEPHRINE [Suspect]
     Active Substance: EPINEPHRINE
     Indication: Cardiac arrest
     Dosage: UNK
     Route: 065

REACTIONS (3)
  - Arteriospasm coronary [Recovered/Resolved]
  - Ventricular tachycardia [Recovered/Resolved]
  - Haemodynamic instability [Recovered/Resolved]
